FAERS Safety Report 7646387-8 (Version None)
Quarter: 2011Q3

REPORT INFORMATION
  Report Type: 
  Country: None (occurrence: None)
  Receive Date: 20110801
  Receipt Date: 20110722
  Transmission Date: 20111222
  Serious: No
  Sender: FDA-Public Use
  Company Number: US-JNJFOC-20110700116

PATIENT
  Sex: Female
  Weight: 68.04 kg

DRUGS (6)
  1. DURAGESIC-100 [Suspect]
     Indication: BACK PAIN
     Dosage: 2 PATCHES OF 100UG/HR
     Route: 062
     Dates: start: 20110501
  2. BUSPAR [Concomitant]
     Indication: PRODUCT USED FOR UNKNOWN INDICATION
     Route: 065
  3. HYDROMORPHONE HCL [Concomitant]
     Indication: BREAKTHROUGH PAIN
     Dosage: 4MG EVERY 8-12 HOURS AS NEEDED
     Route: 048
  4. WELLBUTRIN [Concomitant]
     Indication: PRODUCT USED FOR UNKNOWN INDICATION
     Route: 065
     Dates: start: 20110101
  5. FENTANYL [Suspect]
     Indication: BACK DISORDER
     Route: 062
     Dates: start: 20110623
  6. DURAGESIC-100 [Suspect]
     Indication: ARTHRALGIA
     Dosage: 2 PATCHES OF 100UG/HR
     Route: 062
     Dates: start: 20110501

REACTIONS (4)
  - PAIN IN EXTREMITY [None]
  - PRODUCT ADHESION ISSUE [None]
  - PAIN [None]
  - WRONG TECHNIQUE IN DRUG USAGE PROCESS [None]
